FAERS Safety Report 5281111-8 (Version None)
Quarter: 2007Q1

REPORT INFORMATION
  Report Type: 
  Country: None (occurrence: None)
  Receive Date: 20070323
  Receipt Date: 20070312
  Transmission Date: 20070707
  Serious: Yes (Other)
  Sender: FDA-Public Use
  Company Number: CHNY2006AU03480

PATIENT
  Age: 41 Year
  Sex: Female
  Weight: 91 kg

DRUGS (1)
  1. NICOTINE [Suspect]
     Indication: SMOKING CESSATION THERAPY
     Dosage: 6-7 PIECES 4 MG, QD, CHEWED
     Dates: start: 20061216, end: 20061220

REACTIONS (10)
  - ANXIETY [None]
  - DRUG HYPERSENSITIVITY [None]
  - EATING DISORDER [None]
  - LARYNGEAL DISORDER [None]
  - MUCOUS MEMBRANE DISORDER [None]
  - NECK MASS [None]
  - NEOPLASM [None]
  - PSYCHOSOMATIC DISEASE [None]
  - REFLUX OESOPHAGITIS [None]
  - WEIGHT DECREASED [None]
